FAERS Safety Report 12671628 (Version 1)
Quarter: 2016Q3

REPORT INFORMATION
  Report Type: Spontaneous
  Country: FR (occurrence: FR)
  Receive Date: 20160822
  Receipt Date: 20160822
  Transmission Date: 20161109
  Serious: Yes (Hospitalization)
  Sender: FDA-Public Use
  Company Number: FR-BAXTER-2016BAX023205

PATIENT
  Age: 49 Year
  Sex: Female

DRUGS (1)
  1. ARTISS [Suspect]
     Active Substance: FIBRINOGEN HUMAN\THROMBIN HUMAN
     Indication: MASTECTOMY
     Route: 026
     Dates: start: 20160427, end: 20160427

REACTIONS (2)
  - Subcutaneous emphysema [Recovered/Resolved]
  - Headache [Recovered/Resolved]

NARRATIVE: CASE EVENT DATE: 20160427
